FAERS Safety Report 17322932 (Version 49)
Quarter: 2024Q3

REPORT INFORMATION
  Report Type: Report from Study
  Country: CA (occurrence: CA)
  Receive Date: 20200127
  Receipt Date: 20240801
  Transmission Date: 20241017
  Serious: Yes (Other)
  Sender: ROCHE
  Company Number: CA-ROCHE-2521131

PATIENT
  Age: 48 Year
  Sex: Male

DRUGS (14)
  1. OCREVUS [Suspect]
     Active Substance: OCRELIZUMAB
     Indication: Relapsing-remitting multiple sclerosis
     Dosage: 300 MG AT DAY 0 AND 14, THEN 600 MG EVERY 6 MONTHS
     Route: 042
     Dates: start: 20200106
  2. OCREVUS [Suspect]
     Active Substance: OCRELIZUMAB
     Dosage: PERFUSION NO: 3
     Route: 042
     Dates: start: 20200721
  3. OCREVUS [Suspect]
     Active Substance: OCRELIZUMAB
     Dosage: INFUSION NUMBER: 4
     Route: 042
     Dates: start: 20210127
  4. OCREVUS [Suspect]
     Active Substance: OCRELIZUMAB
     Route: 042
  5. ACETAMINOPHEN [Suspect]
     Active Substance: ACETAMINOPHEN
     Indication: Premedication
     Route: 048
  6. BENADRYL [Suspect]
     Active Substance: DIPHENHYDRAMINE HYDROCHLORIDE
     Indication: Premedication
     Route: 048
  7. METHYLPREDNISOLONE [Suspect]
     Active Substance: METHYLPREDNISOLONE
     Indication: Premedication
     Route: 042
  8. BISOPROLOL [Concomitant]
     Active Substance: BISOPROLOL\BISOPROLOL FUMARATE
     Indication: Blood pressure measurement
  9. BISOPROLOL [Concomitant]
     Active Substance: BISOPROLOL\BISOPROLOL FUMARATE
     Dosage: ILLEGIBLE MAY BE DIE
     Route: 048
  10. METOPROLOL [Concomitant]
     Active Substance: METOPROLOL
  11. VITAMIN C [Concomitant]
     Active Substance: ASCORBIC ACID
  12. VITAMIN D3 [Concomitant]
     Active Substance: CHOLECALCIFEROL
  13. VITAMIN B12 [Concomitant]
     Active Substance: CYANOCOBALAMIN
  14. DALFAMPRIDINE [Concomitant]
     Active Substance: DALFAMPRIDINE

REACTIONS (60)
  - Herpes zoster [Unknown]
  - Shock [Not Recovered/Not Resolved]
  - Umbilical hernia [Not Recovered/Not Resolved]
  - Dysphagia [Unknown]
  - Infusion related reaction [Recovered/Resolved]
  - Hypoaesthesia [Not Recovered/Not Resolved]
  - Abdominal rigidity [Unknown]
  - Hyperhidrosis [Recovered/Resolved]
  - Euphoric mood [Recovered/Resolved]
  - Muscle spasms [Unknown]
  - Back pain [Not Recovered/Not Resolved]
  - Vomiting [Not Recovered/Not Resolved]
  - Erythema [Recovered/Resolved]
  - Throat irritation [Recovered/Resolved]
  - Skin burning sensation [Not Recovered/Not Resolved]
  - Pruritus [Not Recovered/Not Resolved]
  - Frequent bowel movements [Not Recovered/Not Resolved]
  - SARS-CoV-2 test positive [Recovering/Resolving]
  - Abdominal pain upper [Unknown]
  - Uhthoff^s phenomenon [Unknown]
  - Abdominal distension [Unknown]
  - Gastrointestinal oedema [Unknown]
  - Burning sensation [Unknown]
  - Insomnia [Unknown]
  - Sensory disturbance [Not Recovered/Not Resolved]
  - Nasopharyngitis [Not Recovered/Not Resolved]
  - Abdominal pain [Not Recovered/Not Resolved]
  - Pain in extremity [Not Recovered/Not Resolved]
  - Nasal discomfort [Not Recovered/Not Resolved]
  - Epistaxis [Not Recovered/Not Resolved]
  - Fatigue [Unknown]
  - Axillary pain [Not Recovered/Not Resolved]
  - Hypersomnia [Not Recovered/Not Resolved]
  - Discomfort [Not Recovered/Not Resolved]
  - Blister [Recovered/Resolved]
  - Asthenia [Not Recovered/Not Resolved]
  - Presbyopia [Unknown]
  - Somnolence [Recovered/Resolved]
  - Pain of skin [Not Recovered/Not Resolved]
  - Arthralgia [Not Recovered/Not Resolved]
  - Anorectal discomfort [Not Recovered/Not Resolved]
  - Musculoskeletal chest pain [Unknown]
  - Memory impairment [Unknown]
  - Multiple sclerosis [Unknown]
  - Carpal tunnel syndrome [Unknown]
  - Gait disturbance [Not Recovered/Not Resolved]
  - Speech disorder [Unknown]
  - Eating disorder [Unknown]
  - Abdominal discomfort [Not Recovered/Not Resolved]
  - Gastrointestinal disorder [Unknown]
  - Peroneal nerve palsy [Not Recovered/Not Resolved]
  - Muscle atrophy [Not Recovered/Not Resolved]
  - Muscular weakness [Unknown]
  - Gastrooesophageal reflux disease [Not Recovered/Not Resolved]
  - Muscle spasticity [Not Recovered/Not Resolved]
  - Movement disorder [Unknown]
  - Sensitive skin [Unknown]
  - Pain [Unknown]
  - Pharyngeal disorder [Unknown]
  - Skin burning sensation [Unknown]

NARRATIVE: CASE EVENT DATE: 20200106
